FAERS Safety Report 6866750-2 (Version None)
Quarter: 2010Q3

REPORT INFORMATION
  Report Type: 
  Country: None (occurrence: None)
  Receive Date: 20100722
  Receipt Date: 20100715
  Transmission Date: 20110219
  Serious: Yes (Hospitalization)
  Sender: FDA-Public Use
  Company Number: PHHO2009ES13813

PATIENT
  Sex: Male
  Weight: 88 kg

DRUGS (10)
  1. ZOMETA [Suspect]
     Dosage: UNK
     Route: 042
     Dates: start: 20080917
  2. PREDNISONE TAB [Concomitant]
     Indication: PROSTATE CANCER
     Dosage: 5 MG, BID
     Route: 048
     Dates: start: 20090723
  3. OMEPRAZOLE [Concomitant]
  4. ENALAPRIL MALEATE [Concomitant]
  5. DIAZEPAM [Concomitant]
  6. METFORMIN HCL [Concomitant]
  7. ROHIPNOL [Concomitant]
  8. LYRICA [Concomitant]
  9. SERTRALINE HCL [Concomitant]
  10. ALLOPURINOL [Concomitant]

REACTIONS (3)
  - OSTEOARTHRITIS [None]
  - OSTEONECROSIS OF JAW [None]
  - PAIN [None]
